FAERS Safety Report 23859238 (Version 1)
Quarter: 2024Q2

REPORT INFORMATION
  Report Type: Spontaneous
  Country: US (occurrence: US)
  Receive Date: 20240515
  Receipt Date: 20240515
  Transmission Date: 20240715
  Serious: No
  Sender: FDA-Public Use
  Company Number: US-GLENMARK PHARMACEUTICALS-2023GMK086004

PATIENT

DRUGS (2)
  1. TACROLIMUS [Suspect]
     Active Substance: TACROLIMUS
     Indication: Product used for unknown indication
     Dosage: UNK, (USED THE MEDICATION ON AND OFF FOR TWO YEARS, USED THE MEDICATION INTERMITTENTLY AND SPARINGLY
     Route: 065
  2. TACROLIMUS [Suspect]
     Active Substance: TACROLIMUS
     Dosage: UNK
     Route: 065

REACTIONS (4)
  - Product dispensing error [Unknown]
  - Expired product administered [Unknown]
  - Burning sensation [Unknown]
  - Product quality issue [Unknown]
